FAERS Safety Report 7374120-6 (Version None)
Quarter: 2011Q1

REPORT INFORMATION
  Report Type: 
  Country: None (occurrence: None)
  Receive Date: 20110325
  Receipt Date: 20101001
  Transmission Date: 20110831
  Serious: Yes (Hospitalization)
  Sender: FDA-Public Use
  Company Number: US-BAYER-201026144NA

PATIENT
  Sex: Female
  Weight: 81.633 kg

DRUGS (5)
  1. PHENTERMINE [Concomitant]
  2. ULTRAM [Concomitant]
  3. NAPROSYN [Concomitant]
  4. YAZ [Suspect]
     Dosage: UNK UNK, QD
     Route: 048
     Dates: start: 20071101, end: 20080601
  5. PEPCID [Concomitant]
     Dosage: 20 MG, BID

REACTIONS (5)
  - EATING DISORDER [None]
  - SCAR [None]
  - BILIARY DYSKINESIA [None]
  - IRRITABLE BOWEL SYNDROME [None]
  - GALLBLADDER DISORDER [None]
